FAERS Safety Report 26076838 (Version 1)
Quarter: 2025Q4

REPORT INFORMATION
  Report Type: Spontaneous
  Country: US (occurrence: US)
  Receive Date: 20251121
  Receipt Date: 20251121
  Transmission Date: 20260118
  Serious: No
  Sender: MILLICENT HOLDINGS
  Company Number: US-Millicent Holdings Ltd.-MILL20250325

PATIENT
  Age: 56 Year
  Sex: Female

DRUGS (5)
  1. FEMRING [Suspect]
     Active Substance: ESTRADIOL ACETATE
     Indication: Postmenopause
     Route: 067
  2. FEMRING [Suspect]
     Active Substance: ESTRADIOL ACETATE
     Indication: Hot flush
  3. FEMRING [Suspect]
     Active Substance: ESTRADIOL ACETATE
     Indication: Menopausal symptoms
  4. Progesterone implant [Concomitant]
  5. CALCIUM [Concomitant]
     Active Substance: CALCIUM

REACTIONS (3)
  - Product dose omission issue [Unknown]
  - Device expulsion [Unknown]
  - Product use issue [Unknown]

NARRATIVE: CASE EVENT DATE: 20251113
